FAERS Safety Report 18674898 (Version 2)
Quarter: 2021Q1

REPORT INFORMATION
  Report Type: Report from Study
  Country: JP (occurrence: JP)
  Receive Date: 20201229
  Receipt Date: 20210107
  Transmission Date: 20210419
  Serious: Yes (Hospitalization)
  Sender: FDA-Public Use
  Company Number: NVSJ2020JP014425

PATIENT
  Age: 51 Year
  Sex: Female
  Weight: 56.7 kg

DRUGS (5)
  1. EXEMESTANE. [Suspect]
     Active Substance: EXEMESTANE
     Indication: BREAST CANCER
     Dosage: 25 MG DAILY
     Route: 048
     Dates: start: 20190528, end: 20200721
  2. EXEMESTANE. [Suspect]
     Active Substance: EXEMESTANE
     Dosage: 25 MG DAILY
     Route: 048
     Dates: start: 20200807
  3. BESOFTEN [Concomitant]
     Active Substance: PENTOSAN POLYSULFATE SODIUM
     Indication: RADIATION SKIN INJURY
     Dosage: UNK
     Route: 065
  4. ANTEBATE [Concomitant]
     Active Substance: BETAMETHASONE DIPROPIONATE
     Indication: RADIATION SKIN INJURY
     Dosage: UNK
     Route: 065
  5. LETROZOLE. [Suspect]
     Active Substance: LETROZOLE
     Indication: BREAST CANCER
     Dosage: 2.5 MG, DAILY
     Route: 048
     Dates: start: 20180724, end: 20190527

REACTIONS (4)
  - Second primary malignancy [Recovered/Resolved]
  - Arthralgia [Unknown]
  - Genital haemorrhage [Unknown]
  - Ovarian neoplasm [Recovered/Resolved]

NARRATIVE: CASE EVENT DATE: 20201203
